FAERS Safety Report 7370835-4 (Version None)
Quarter: 2011Q1

REPORT INFORMATION
  Report Type: 
  Country: None (occurrence: None)
  Receive Date: 20110324
  Receipt Date: 20110309
  Transmission Date: 20110831
  Serious: No
  Sender: FDA-Public Use
  Company Number: US-BIOGENIDEC-2010BI036295

PATIENT
  Age: 66 Year
  Sex: Female

DRUGS (2)
  1. TYSABRI [Suspect]
     Indication: CROHN'S DISEASE
     Route: 042
     Dates: start: 20090824, end: 20100501
  2. TYSABRI [Suspect]
     Route: 042
     Dates: start: 20100701

REACTIONS (5)
  - NIGHT BLINDNESS [None]
  - BALANCE DISORDER [None]
  - HEADACHE [None]
  - INJURY [None]
  - RHEUMATOID ARTHRITIS [None]
